FAERS Safety Report 24670982 (Version 1)
Quarter: 2024Q4

REPORT INFORMATION
  Report Type: Other
  Country: GB (occurrence: GB)
  Receive Date: 20241127
  Receipt Date: 20241127
  Transmission Date: 20250114
  Serious: Yes (Other)
  Sender: GLENMARK
  Company Number: None

PATIENT

DRUGS (1)
  1. EZETIMIBE [Suspect]
     Active Substance: EZETIMIBE
     Indication: Product used for unknown indication
     Dosage: 10 MILLIGRAM, OD(10MG ONCE A NIGHT  )
     Route: 065
     Dates: start: 20241111

REACTIONS (3)
  - Lip swelling [Unknown]
  - Fatigue [Unknown]
  - Chromaturia [Unknown]

NARRATIVE: CASE EVENT DATE: 20241113
